FAERS Safety Report 24843650 (Version 2)
Quarter: 2025Q1

REPORT INFORMATION
  Report Type: Spontaneous
  Country: IN (occurrence: IN)
  Receive Date: 20250115
  Receipt Date: 20250210
  Transmission Date: 20250409
  Serious: Yes (Other)
  Sender: ROCHE
  Company Number: IN-ROCHE-10000078243

PATIENT
  Age: 54 Year
  Sex: Male
  Weight: 78 kg

DRUGS (1)
  1. TECENTRIQ [Suspect]
     Active Substance: ATEZOLIZUMAB
     Indication: Renal cell carcinoma
     Route: 042
     Dates: start: 20230918

REACTIONS (6)
  - Off label use [Unknown]
  - Haemoglobin decreased [Unknown]
  - Metastases to bone [Unknown]
  - Renal disorder [Unknown]
  - Pulmonary mass [Unknown]
  - Osteolysis [Unknown]

NARRATIVE: CASE EVENT DATE: 20230918
